FAERS Safety Report 9958658 (Version 4)
Quarter: 2014Q3

REPORT INFORMATION
  Report Type: Spontaneous
  Country: JP (occurrence: None)
  Receive Date: 20140227
  Receipt Date: 20140708
  Transmission Date: 20150326
  Serious: Yes (Death, Other)
  Sender: FDA-Public Use
  Company Number: JP-20140030

PATIENT
  Age: 48 Year
  Sex: Female

DRUGS (7)
  1. DOTAREM [Suspect]
     Active Substance: GADOTERATE MEGLUMINE
     Indication: NUCLEAR MAGNETIC RESONANCE IMAGING
     Dosage: 20 ML (20 ML, 1 IN 1 D) INTRAVENOUS (NOT OTHERWISE SPCIFIED)
     Route: 042
     Dates: start: 20140203, end: 20140203
  2. ACETAMINOPHEN (ACETAMINOPHEN) [Concomitant]
     Active Substance: ACETAMINOPHEN
  3. SAWACILLIN [Suspect]
     Active Substance: AMOXICILLIN
     Indication: PRODUCT USED FOR UNKNOWN INDICATION
     Route: 048
     Dates: start: 20140205
  4. LOXOPROFEN SODIUM [Suspect]
     Active Substance: LOXOPROFEN SODIUM
     Indication: PRODUCT USED FOR UNKNOWN INDICATION
     Route: 048
     Dates: start: 20140205
  5. SEDES (AMINOPHENAZONE, CAFFEINE, PHENACETIN, CYCLOBARBITAL AMINOPHENAZONE) [Suspect]
     Active Substance: AMINOPHENAZONE\CAFFEINE\CYCLOBARBITAL AMINOPHENAZONE\PHENACETIN
     Indication: PRODUCT USED FOR UNKNOWN INDICATION
  6. VOLTAREN [Concomitant]
     Active Substance: DICLOFENAC SODIUM
     Indication: PRODUCT USED FOR UNKNOWN INDICATION
     Route: 048
     Dates: start: 20140205
  7. ADOFEED PAP [Suspect]
     Active Substance: FLURBIPROFEN
     Indication: PRODUCT USED FOR UNKNOWN INDICATION
     Dosage: TRANSDERMAL
     Route: 062
     Dates: start: 20140205

REACTIONS (8)
  - Abdominal pain upper [None]
  - Inflammation [None]
  - Musculoskeletal pain [None]
  - Pain [None]
  - Vomiting [None]
  - Cardio-respiratory arrest [None]
  - Flank pain [None]
  - Infusion site pain [None]

NARRATIVE: CASE EVENT DATE: 20140204
